FAERS Safety Report 20596360 (Version 1)
Quarter: 2022Q1

REPORT INFORMATION
  Report Type: Spontaneous
  Country: GB (occurrence: GB)
  Receive Date: 20220315
  Receipt Date: 20220315
  Transmission Date: 20220423
  Serious: Yes (Other)
  Sender: FDA-Public Use
  Company Number: GB-STRIDES ARCOLAB LIMITED-2022SP002488

PATIENT
  Age: 62 Year
  Sex: Female

DRUGS (7)
  1. HYDROCORTISONE [Suspect]
     Active Substance: HYDROCORTISONE
     Indication: Product used for unknown indication
     Dosage: 100 MILLIGRAM
     Route: 065
  2. HYDROCORTISONE [Suspect]
     Active Substance: HYDROCORTISONE
     Dosage: 100 MILLIGRAM, AT 11:55 HOURS
     Route: 065
     Dates: start: 20220217
  3. SODIUM CHLORIDE [Suspect]
     Active Substance: SODIUM CHLORIDE
     Indication: Medication dilution
     Dosage: CYCLE 1INFUSION RATE: 6 MINUTES-16.1 UNIT, AT 11:42 HOURSS
     Route: 042
     Dates: start: 20220217
  4. SODIUM CHLORIDE [Suspect]
     Active Substance: SODIUM CHLORIDE
     Indication: Anaphylactic reaction
     Dosage: 250 MILLILITER,  FAST DRIP, AT 11:50 HOURS,
     Route: 041
     Dates: start: 20220217
  5. ADRENALIN [Suspect]
     Active Substance: EPINEPHRINE
     Indication: Anaphylactic reaction
     Dosage: FAST DRIP AND 1ST DOSE AT 11:50 HOURS,
     Route: 065
     Dates: start: 20220217
  6. ADRENALIN [Suspect]
     Active Substance: EPINEPHRINE
     Dosage: UNK, AT 11:58 HOURS, 2ND DOSE
     Route: 065
     Dates: start: 20220217
  7. PACLITAXEL [Suspect]
     Active Substance: PACLITAXEL
     Indication: Product used for unknown indication
     Dosage: CYCLE 1INFUSION RATE: 6 MINUTES-16.1 UNITS, AT 11:42 HOURS
     Route: 042
     Dates: start: 20220217

REACTIONS (3)
  - Back pain [Unknown]
  - Agitation [Unknown]
  - Anaphylactic reaction [Unknown]

NARRATIVE: CASE EVENT DATE: 20220217
